FAERS Safety Report 12429284 (Version 1)
Quarter: 2016Q2

REPORT INFORMATION
  Report Type: Spontaneous
  Country: US (occurrence: US)
  Receive Date: 20160602
  Receipt Date: 20160602
  Transmission Date: 20160815
  Serious: No
  Sender: FDA-Public Use
  Company Number: US-ASTRAZENECA-2016SE55575

PATIENT
  Sex: Male
  Weight: 52.2 kg

DRUGS (4)
  1. BRILINTA [Suspect]
     Active Substance: TICAGRELOR
     Indication: ACUTE CORONARY SYNDROME
     Dosage: 90 MILLIGRAMS TWO TIMES A DAY
     Route: 048
     Dates: start: 20151228
  2. ASPIRIN. [Concomitant]
     Active Substance: ASPIRIN
     Indication: MYOCARDIAL INFARCTION
     Route: 048
     Dates: start: 20151228
  3. BRILINTA [Suspect]
     Active Substance: TICAGRELOR
     Indication: MYOCARDIAL INFARCTION
     Dosage: 90 MILLIGRAMS TWO TIMES A DAY
     Route: 048
     Dates: start: 20151228
  4. ATORVASTATIN [Concomitant]
     Active Substance: ATORVASTATIN
     Indication: BLOOD CHOLESTEROL ABNORMAL
     Route: 048
     Dates: start: 20151228

REACTIONS (5)
  - Muscle spasms [Unknown]
  - Pain in extremity [Unknown]
  - Weight decreased [Unknown]
  - Nodule [Unknown]
  - Contusion [Unknown]
